FAERS Safety Report 6054060-5 (Version None)
Quarter: 2009Q1

REPORT INFORMATION
  Report Type: 
  Country: None (occurrence: None)
  Receive Date: 20090127
  Receipt Date: 20090119
  Transmission Date: 20090719
  Serious: Yes (Hospitalization)
  Sender: FDA-Public Use
  Company Number: FR-PFIZER INC-2007001787

PATIENT

DRUGS (2)
  1. SOLU-MEDROL [Suspect]
     Indication: HENOCH-SCHONLEIN PURPURA
     Route: 042
     Dates: start: 20061122, end: 20060101
  2. SOLU-MEDROL [Suspect]
     Indication: RENAL DISORDER

REACTIONS (2)
  - FACE OEDEMA [None]
  - SHOCK [None]
